FAERS Safety Report 14986626 (Version 2)
Quarter: 2018Q2

REPORT INFORMATION
  Report Type: Spontaneous
  Country: US (occurrence: US)
  Receive Date: 20180608
  Receipt Date: 20180628
  Transmission Date: 20180711
  Serious: Yes (Hospitalization, Other)
  Sender: FDA-Public Use
  Company Number: US-AMGEN-USASP2018076100

PATIENT
  Age: 56 Year
  Sex: Female

DRUGS (41)
  1. TYLENOL [Concomitant]
     Active Substance: ACETAMINOPHEN
     Dosage: 650 MG, ONCE
     Route: 048
     Dates: start: 20180522
  2. BENADRYL [Concomitant]
     Active Substance: DIPHENHYDRAMINE HYDROCHLORIDE
     Dosage: 50 MG, UNK (ONCE)
     Route: 048
     Dates: start: 20180522
  3. ASPIRIN. [Concomitant]
     Active Substance: ASPIRIN
     Dosage: 81 MG, BID
     Route: 048
  4. CHOLECALCIFEROL [Concomitant]
     Active Substance: CHOLECALCIFEROL
     Dosage: 150 MG, TID
     Route: 048
     Dates: start: 20180417
  5. ADVIL [Concomitant]
     Active Substance: IBUPROFEN
     Dosage: 800 MG, Q8H
     Route: 048
     Dates: start: 20180511
  6. NEULASTA [Suspect]
     Active Substance: PEGFILGRASTIM
     Indication: PRODUCT USED FOR UNKNOWN INDICATION
     Dosage: 6 MG, UNK (ONCE)
     Route: 058
     Dates: start: 20180523
  7. PRILOSEC [Concomitant]
     Active Substance: OMEPRAZOLE MAGNESIUM
     Indication: ULCER
     Dosage: 40 MG, UNK
     Route: 048
     Dates: start: 20180424, end: 20180524
  8. PRINIVIL [Concomitant]
     Active Substance: LISINOPRIL
     Indication: DIABETES MELLITUS
     Dosage: 2.5 MG, Q8H
     Route: 048
     Dates: start: 20040101
  9. LORATADINE. [Concomitant]
     Active Substance: LORATADINE
     Indication: PROPHYLAXIS
     Dosage: UNK
  10. ROXICODONE [Concomitant]
     Active Substance: OXYCODONE HYDROCHLORIDE
     Indication: PAIN
     Dosage: 10 MG, Q4H
     Route: 048
     Dates: start: 20180404
  11. VENETOCLAX. [Suspect]
     Active Substance: VENETOCLAX
     Indication: B-CELL LYMPHOMA
     Dosage: 800 MG, QD (ON DAYS 1-10 OF EACH CYCLE)
     Route: 048
     Dates: start: 20180522
  12. MARIJUANA [Concomitant]
     Active Substance: CANNABIS SATIVA SUBSP. INDICA TOP
     Dosage: UNK
  13. DEXTROSE. [Concomitant]
     Active Substance: DEXTROSE
     Dosage: 25 ML, AS NECESSARY
     Route: 042
  14. DULOXETINE. [Concomitant]
     Active Substance: DULOXETINE
     Dosage: 60 MG, QD
     Route: 048
  15. NOVOLOG [Concomitant]
     Active Substance: INSULIN ASPART
     Dosage: 0.1 ML, TID
     Route: 058
     Dates: start: 20180416
  16. BENADRYL [Concomitant]
     Active Substance: DIPHENHYDRAMINE HYDROCHLORIDE
     Dosage: 50 MG, UNK (ONCE)
     Route: 048
     Dates: start: 20180523
  17. GLUCOPHAGE [Concomitant]
     Active Substance: METFORMIN HYDROCHLORIDE
     Indication: DIABETES MELLITUS
     Dosage: 1000 MG, BID
     Route: 048
     Dates: start: 20140101
  18. MS CONTIN [Concomitant]
     Active Substance: MORPHINE SULFATE
     Indication: BACK PAIN
     Dosage: 30 MG, Q12H
     Route: 048
     Dates: start: 20180503, end: 20180531
  19. NICODERM CQ [Concomitant]
     Active Substance: NICOTINE
     Dosage: 1 DF, QD (PATCH)
     Route: 062
     Dates: start: 20180416, end: 20180516
  20. LYRICA [Concomitant]
     Active Substance: PREGABALIN
     Indication: FIBROMYALGIA
     Dosage: 150 MG, TID
     Route: 048
     Dates: start: 20180416
  21. CYMBALTA [Concomitant]
     Active Substance: DULOXETINE HYDROCHLORIDE
     Indication: DEPRESSION
     Dosage: 60 MG, QD
     Route: 048
     Dates: start: 20100109
  22. DECADRON [Concomitant]
     Active Substance: DEXAMETHASONE
     Dosage: 20 MG, UNK (ONCE)
     Route: 048
     Dates: start: 20180522
  23. ELITEK [Concomitant]
     Active Substance: RASBURICASE
     Dosage: 3 MG, UNK (3 MG IN 100 ML/HR)
     Route: 042
     Dates: start: 20180523
  24. OBINUTUZUMAB. [Suspect]
     Active Substance: OBINUTUZUMAB
     Indication: B-CELL LYMPHOMA
     Dosage: 1000 MG, UNK
     Route: 042
     Dates: start: 20180522
  25. BENDAMUSTINE [Suspect]
     Active Substance: BENDAMUSTINE
     Indication: B-CELL LYMPHOMA
     Dosage: 200 MG, UNK
     Route: 042
     Dates: start: 20180522
  26. DECADRON [Concomitant]
     Active Substance: DEXAMETHASONE
     Dosage: 20 MG, UNK (ONCE)
     Route: 048
     Dates: start: 20180523
  27. ZOFRAN [Concomitant]
     Active Substance: ONDANSETRON HYDROCHLORIDE
     Dosage: 4 MG, Q8H (3 IN 1 D)
     Route: 048
     Dates: start: 20180401
  28. GLUCOSE [Concomitant]
     Active Substance: DEXTROSE
     Dosage: 16 G, AS NECESSARY
     Route: 048
  29. INSULIN GLARGINE [Concomitant]
     Active Substance: INSULIN GLARGINE
     Dosage: 20 UNIT, QHS
     Route: 058
     Dates: end: 20180416
  30. REMERON [Concomitant]
     Active Substance: MIRTAZAPINE
     Indication: INSOMNIA
     Dosage: 30 MG, QHS
     Route: 048
     Dates: start: 20170101
  31. MS CONTIN [Concomitant]
     Active Substance: MORPHINE SULFATE
     Indication: FIBROMYALGIA
  32. TYLENOL [Concomitant]
     Active Substance: ACETAMINOPHEN
     Dosage: 650 MG, ONCE
     Route: 048
     Dates: start: 20180523
  33. ZOFRAN [Concomitant]
     Active Substance: ONDANSETRON HYDROCHLORIDE
     Indication: NAUSEA
     Dosage: 16 MG, UNK (ONCE)
     Route: 048
     Dates: start: 20180522
  34. ZOFRAN [Concomitant]
     Active Substance: ONDANSETRON HYDROCHLORIDE
     Dosage: 16 MG, UNK (ONCE)
     Route: 048
     Dates: start: 20180523
  35. ALLOPURINOL. [Concomitant]
     Active Substance: ALLOPURINOL
     Dosage: UNK
     Dates: start: 20180520
  36. ENOXAPARIN [Concomitant]
     Active Substance: ENOXAPARIN
     Dosage: 40 MG, QD
     Route: 058
  37. ATIVAN [Concomitant]
     Active Substance: LORAZEPAM
     Indication: ANXIETY
     Dosage: 0.5 MG, Q8H
     Route: 048
     Dates: start: 20180416, end: 20180516
  38. MYRBETRIQ [Concomitant]
     Active Substance: MIRABEGRON
     Indication: HYPERTONIC BLADDER
     Dosage: 25 MG, QHS
     Route: 048
     Dates: start: 20180511
  39. FARXIGA [Concomitant]
     Active Substance: DAPAGLIFLOZIN PROPANEDIOL
     Dosage: 10 MG, QHS (EVERY EVENING AT BED TIME)
     Route: 048
     Dates: start: 20180516
  40. CYMBALTA [Concomitant]
     Active Substance: DULOXETINE HYDROCHLORIDE
     Indication: ANXIETY
  41. NIZORAL [Concomitant]
     Active Substance: KETOCONAZOLE
     Indication: RASH
     Dosage: UNK
     Route: 061
     Dates: start: 20140101

REACTIONS (2)
  - Pyrexia [Recovered/Resolved]
  - Tumour lysis syndrome [Recovered/Resolved]

NARRATIVE: CASE EVENT DATE: 20180523
